FAERS Safety Report 4922771-8 (Version None)
Quarter: 2006Q1

REPORT INFORMATION
  Report Type: 
  Country: None (occurrence: None)
  Receive Date: 20060221
  Receipt Date: 20060127
  Transmission Date: 20060701
  Serious: Yes (Hospitalization)
  Sender: FDA-Public Use
  Company Number: 6020214

PATIENT
  Age: 43 Year
  Sex: Female

DRUGS (11)
  1. DERALIN (40 MG, TABLET) (PROPRANOLOL) [Suspect]
     Indication: NEUROSIS
     Dosage: SEE IMAGE
     Route: 048
     Dates: start: 20020117, end: 20020124
  2. DERALIN (40 MG, TABLET) (PROPRANOLOL) [Suspect]
     Indication: NEUROSIS
     Dosage: SEE IMAGE
     Route: 048
     Dates: start: 20020124
  3. PAXAM (2 MG, TABLET) (CLONAZEPAM) [Suspect]
     Indication: SENSORY DISTURBANCE
     Dosage: SEE IMAGE
     Route: 048
     Dates: start: 20020117, end: 20020124
  4. PAXAM (2 MG, TABLET) (CLONAZEPAM) [Suspect]
     Indication: SENSORY DISTURBANCE
     Dosage: SEE IMAGE
     Route: 048
     Dates: start: 20020124, end: 20020124
  5. CIPRAMIL (40 MG, TABLET) [Suspect]
     Indication: DEPRESSION
     Dosage: 40,000 MG (40 MG, 1 IN 1 D), ORAL
     Route: 048
     Dates: start: 20020117, end: 20020124
  6. NEURONTIN [Suspect]
     Dosage: SEE IMAGE
     Route: 048
     Dates: start: 20020121, end: 20020124
  7. NEURONTIN [Suspect]
     Dosage: SEE IMAGE
     Route: 048
     Dates: start: 20020124, end: 20020128
  8. DROLEPTAN (5MG, INJECTION) (DROPERIDOL) [Suspect]
     Dosage: (5MG, 1 D), INTRAVENOUS
     Route: 042
     Dates: start: 20020117, end: 20020126
  9. ZYPREXA [Suspect]
     Indication: SCHIZOPHRENIA
     Dosage: (20 MG, 1 D), ORAL
     Route: 048
     Dates: start: 20020115, end: 20020124
  10. SEROQUEL [Suspect]
     Indication: SCHIZOPHRENIA
     Dosage: (400 MG, 1 D), ORAL
     Route: 048
     Dates: start: 20020121, end: 20020124
  11. SERENACE (10 MG, TABLET) (HALOPERIDOL) [Suspect]
     Indication: PSYCHOTIC DISORDER
     Dosage: (10 MG, 1 D), ORAL
     Route: 048
     Dates: start: 20020121, end: 20020124

REACTIONS (7)
  - ANURIA [None]
  - BLOOD CREATINE PHOSPHOKINASE INCREASED [None]
  - DYSPNOEA [None]
  - HYPOTENSION [None]
  - OEDEMA [None]
  - PERIPHERAL ISCHAEMIA [None]
  - PSYCHOTIC DISORDER [None]
